FAERS Safety Report 18029197 (Version 4)
Quarter: 2020Q4

REPORT INFORMATION
  Report Type: Report from Study
  Country: DE (occurrence: DE)
  Receive Date: 20200715
  Receipt Date: 20201110
  Transmission Date: 20210113
  Serious: Yes (Other)
  Sender: FDA-Public Use
  Company Number: DE-MYLANLABS-2020M1007848

PATIENT
  Sex: Female
  Weight: 73 kg

DRUGS (4)
  1. KISQALI [Suspect]
     Active Substance: RIBOCICLIB
     Indication: BREAST CANCER METASTATIC
     Dosage: 600 MG, QD (21 DAYS INTAKE, 7 DAYS BREAK)
     Route: 048
     Dates: start: 20190930, end: 20191027
  2. KISQALI [Suspect]
     Active Substance: RIBOCICLIB
     Dosage: 600 MG, QD (21 DAYS INTAKE, 7 DAYS BREAK)
     Route: 048
     Dates: start: 20191104
  3. TOREM                              /01036501/ [Concomitant]
     Active Substance: TORSEMIDE
     Indication: PERIPHERAL VENOUS DISEASE
     Dosage: 10 MILLIGRAM, QD 10 MG, (1-0-0-0)
     Dates: start: 20191218
  4. FULVESTRANT. [Suspect]
     Active Substance: FULVESTRANT
     Indication: BREAST CANCER METASTATIC
     Dosage: 250 MILLIGRAM, Q28D (Q4W)
     Route: 030
     Dates: start: 20190926

REACTIONS (4)
  - Neutropenia [Not Recovered/Not Resolved]
  - Weight increased [Unknown]
  - Alopecia [Not Recovered/Not Resolved]
  - Oedema peripheral [Recovering/Resolving]

NARRATIVE: CASE EVENT DATE: 20191028
